FAERS Safety Report 7712115-0 (Version None)
Quarter: 2011Q3

REPORT INFORMATION
  Report Type: 
  Country: None (occurrence: None)
  Receive Date: 20110826
  Receipt Date: 20110819
  Transmission Date: 20111222
  Serious: Yes (Hospitalization)
  Sender: FDA-Public Use
  Company Number: US-AMGEN-USASP2011038991

PATIENT
  Age: 54 Year
  Sex: Female

DRUGS (1)
  1. ENBREL [Suspect]
     Indication: RHEUMATOID ARTHRITIS
     Dosage: 25 MG, 2 TIMES/WK
     Dates: start: 20030901

REACTIONS (13)
  - CARTILAGE ATROPHY [None]
  - TREATMENT NONCOMPLIANCE [None]
  - SKIN DISORDER [None]
  - SYNCOPE [None]
  - HYPOTENSION [None]
  - OSTEOPOROSIS [None]
  - SKIN ULCER [None]
  - OEDEMA PERIPHERAL [None]
  - HYPOTHYROIDISM [None]
  - SKIN DISCOLOURATION [None]
  - SPINAL COLUMN STENOSIS [None]
  - LIMB INJURY [None]
  - MENTAL DISORDER [None]
